FAERS Safety Report 23396007 (Version 2)
Quarter: 2024Q2

REPORT INFORMATION
  Report Type: Spontaneous
  Country: US (occurrence: US)
  Receive Date: 20240112
  Receipt Date: 20240417
  Transmission Date: 20240716
  Serious: Yes (Life-Threatening, Hospitalization, Other)
  Sender: FDA-Public Use
  Company Number: US-SA-SAC20240110001746

PATIENT
  Age: 74 Year
  Sex: Male

DRUGS (2)
  1. CAPRELSA [Suspect]
     Active Substance: VANDETANIB
     Indication: Thyroid cancer
     Dosage: 200 MG, QD
     Route: 048
     Dates: start: 20231210
  2. ALKA SELTZER [ACETYLSALICYLIC ACID] [Concomitant]
     Dosage: UNK

REACTIONS (6)
  - Tumour marker increased [Unknown]
  - Electrocardiogram QT interval abnormal [Unknown]
  - Renal disorder [Unknown]
  - Blood pressure abnormal [Unknown]
  - COVID-19 [Unknown]
  - Influenza [Unknown]

NARRATIVE: CASE EVENT DATE: 20230101
